FAERS Safety Report 8488774-4 (Version None)
Quarter: 2012Q3

REPORT INFORMATION
  Report Type: 
  Country: None (occurrence: None)
  Receive Date: 20120705
  Receipt Date: 20120621
  Transmission Date: 20120928
  Serious: Yes (Hospitalization)
  Sender: FDA-Public Use
  Company Number: JP-UCBSA-047779

PATIENT
  Age: 24 Month
  Sex: Male
  Weight: 8 kg

DRUGS (11)
  1. ZONISAMIDE [Concomitant]
     Indication: EPILEPSY
     Dosage: DAILY DOSE: 50 MG
     Route: 048
     Dates: start: 20111210, end: 20111213
  2. KEPPRA [Suspect]
     Route: 048
     Dates: start: 20111210, end: 20111212
  3. SINGULAIR [Concomitant]
     Indication: ASTHMA
     Dosage: DAILY DOSE 4 MG
     Route: 048
     Dates: start: 20111207
  4. NITRAZEPAM [Concomitant]
     Indication: EPILEPSY
     Dosage: DAILY DOSE: 1MG
     Route: 048
     Dates: start: 20110204, end: 20111226
  5. VALPROATE SODIUM [Concomitant]
     Indication: EPILEPSY
     Dosage: DAILY DOSE 200 MG
     Route: 048
     Dates: start: 20111122
  6. NI [Concomitant]
     Indication: GASTROENTERITIS
     Dosage: 0.99 G
     Route: 048
     Dates: start: 20111210, end: 20111219
  7. CALCIUM LACTATE HYDRATE [Concomitant]
     Indication: GASTROENTERITIS
     Dosage: DAILY DOSE 0.99 GRAM
     Route: 048
     Dates: start: 20111210, end: 20111219
  8. LAC-B [Concomitant]
     Indication: GASTROENTERITIS
     Dosage: 0.99 GRAM
     Route: 048
     Dates: start: 20111210, end: 20111226
  9. MIYA BM [Concomitant]
     Indication: GASTROENTERITIS
     Dosage: DAILY DOSE 0.99 GRAM
     Route: 048
     Dates: start: 20111210, end: 20111226
  10. KEPPRA [Suspect]
     Indication: EPILEPSY
     Route: 048
     Dates: start: 20111213, end: 20111215
  11. THYRADIN-S POWDER [Concomitant]
     Indication: HYPOTHYROIDISM
     Dosage: DAILY DOSE: 10 MCG
     Route: 048
     Dates: start: 20090117

REACTIONS (2)
  - PYREXIA [None]
  - MONOCYTE COUNT INCREASED [None]
